FAERS Safety Report 26022261 (Version 1)
Quarter: 2025Q4

REPORT INFORMATION
  Report Type: Spontaneous
  Country: EU (occurrence: EU)
  Receive Date: 20251110
  Receipt Date: 20251110
  Transmission Date: 20260118
  Serious: Yes (Hospitalization, Other)
  Sender: BIOCON
  Company Number: EU-BIOCON BIOLOGICS LIMITED-BBL2025006151

PATIENT

DRUGS (6)
  1. ADALIMUMAB [Suspect]
     Active Substance: ADALIMUMAB
     Indication: Hidradenitis
     Dosage: UNK
     Route: 065
  2. ADALIMUMAB [Suspect]
     Active Substance: ADALIMUMAB
  3. ADALIMUMAB [Suspect]
     Active Substance: ADALIMUMAB
  4. ADALIMUMAB [Suspect]
     Active Substance: ADALIMUMAB
  5. ADALIMUMAB [Suspect]
     Active Substance: ADALIMUMAB
  6. RIFAMPIN [Concomitant]
     Active Substance: RIFAMPIN
     Indication: Antibiotic prophylaxis
     Dosage: 300 MG, BID  (2 X 300 MG )
     Route: 065

REACTIONS (1)
  - Vogt-Koyanagi-Harada disease [Recovered/Resolved]
